FAERS Safety Report 8300542-2 (Version None)
Quarter: 2012Q2

REPORT INFORMATION
  Report Type: 
  Country: None (occurrence: None)
  Receive Date: 20120417
  Receipt Date: 20120404
  Transmission Date: 20120825
  Serious: Yes (Hospitalization, Other)
  Sender: FDA-Public Use
  Company Number: 2009AL002556

PATIENT
  Age: 82 Year
  Sex: Female
  Weight: 68.0396 kg

DRUGS (77)
  1. SYNTHROID [Concomitant]
  2. ZETIA [Concomitant]
  3. CYANOCOBALAMIN [Concomitant]
  4. ADVAIR DISKUS 100/50 [Concomitant]
  5. LEVAQUIN [Concomitant]
  6. VERAPAMIL [Concomitant]
  7. ISOSORBIDE DINITRATE [Concomitant]
  8. SIMVASTATIN [Concomitant]
  9. ATROVENT [Concomitant]
  10. DIGOXIN [Suspect]
     Dosage: 0.125 MG;PO
     Route: 048
     Dates: start: 20071009, end: 20090624
  11. ZOCOR [Concomitant]
  12. PROAIR HFA [Concomitant]
  13. METFORMIN HCL [Concomitant]
  14. SYNTHROID [Concomitant]
  15. NYSTATIN [Concomitant]
  16. ALPRAZOLAM [Concomitant]
  17. KLONOPIN [Concomitant]
  18. CHROMIUM CHLORIDE [Concomitant]
  19. MULTI-VITAMIN [Concomitant]
  20. POTASSIUM CHLORIDE [Concomitant]
  21. MUCINEX [Concomitant]
  22. CYANOCOBALAMIN [Concomitant]
  23. GUAIFENESIN [Concomitant]
  24. LOVAZA [Concomitant]
  25. CATAPRES [Concomitant]
  26. DIOVAN [Concomitant]
  27. DIGIBIND [Concomitant]
  28. MULTI-VITAMINS [Concomitant]
  29. JANUVIA [Concomitant]
  30. ACTOS [Concomitant]
  31. PROTONIX [Concomitant]
  32. NORVASC [Concomitant]
  33. MAG-OX [Concomitant]
  34. PROTONIX [Concomitant]
  35. BENTYL [Concomitant]
  36. ACIPHEX [Concomitant]
  37. CALCIUM [Concomitant]
  38. KLOR-CON [Concomitant]
  39. CALCIUM [Concomitant]
  40. FISH OIL [Concomitant]
  41. ASPIRIN [Concomitant]
  42. AROMASIN [Concomitant]
  43. GLYBURIDE [Concomitant]
  44. MICARDIS [Concomitant]
  45. GLIMEPIRIDE [Concomitant]
  46. PLAVIX [Concomitant]
  47. LEVOXYL [Concomitant]
  48. VYTORIN [Concomitant]
  49. ACTOS [Concomitant]
  50. ALBUTEROL [Concomitant]
  51. COREG [Concomitant]
  52. LASIX [Concomitant]
  53. BENZONATATE [Concomitant]
  54. METHYLPREDNISOLONE [Concomitant]
  55. TOPROL-XL [Concomitant]
  56. AVANDDARYL [Concomitant]
  57. SILICA [Concomitant]
  58. XANAX [Concomitant]
  59. ZYRTEC [Concomitant]
  60. AMLODIPINE [Concomitant]
  61. AMBIEN [Concomitant]
  62. AMIODARONE HCL [Concomitant]
  63. ALTACE [Concomitant]
  64. POTASSIUM CHLORIDE [Concomitant]
  65. ZYRTEC [Concomitant]
  66. NEXIUM [Concomitant]
  67. IMDUR [Concomitant]
  68. AMARYL [Concomitant]
  69. MAXZIDE [Concomitant]
  70. GLUCOPHAGE [Concomitant]
  71. HALFRIN [Concomitant]
  72. VICODIN [Concomitant]
  73. FOLTX [Concomitant]
  74. DUETACT [Concomitant]
  75. LOVENOX [Concomitant]
  76. INSULIN [Concomitant]
  77. CYANOCOBALAMIN [Concomitant]

REACTIONS (81)
  - HYPERCHOLESTEROLAEMIA [None]
  - DIVERTICULUM [None]
  - SCOTOMA [None]
  - PLEURAL EFFUSION [None]
  - HYPERLIPIDAEMIA [None]
  - HYPONATRAEMIA [None]
  - PRESYNCOPE [None]
  - SCAR [None]
  - OEDEMA PERIPHERAL [None]
  - PAIN [None]
  - TYPE 2 DIABETES MELLITUS [None]
  - AZOTAEMIA [None]
  - ISCHAEMIC CARDIOMYOPATHY [None]
  - CARDIAC VALVE DISEASE [None]
  - BREAST MASS [None]
  - HEPATIC STEATOSIS [None]
  - GASTRIC ULCER [None]
  - HAEMORRHOIDS [None]
  - PALPITATIONS [None]
  - ATRIAL FIBRILLATION [None]
  - HEART RATE DECREASED [None]
  - NODAL RHYTHM [None]
  - PLEURAL FIBROSIS [None]
  - HYPERTENSION [None]
  - DIABETES MELLITUS [None]
  - NAUSEA [None]
  - CAROTID BRUIT [None]
  - PEPTIC ULCER [None]
  - TRICUSPID VALVE INCOMPETENCE [None]
  - NEPHROLITHIASIS [None]
  - BLOOD POTASSIUM DECREASED [None]
  - FEELING ABNORMAL [None]
  - CORONARY ARTERY DISEASE [None]
  - HYPOTHYROIDISM [None]
  - ATELECTASIS [None]
  - LUNG DISORDER [None]
  - LOW DENSITY LIPOPROTEIN INCREASED [None]
  - BLOOD CHOLESTEROL INCREASED [None]
  - OESOPHAGITIS [None]
  - BREAST CANCER FEMALE [None]
  - DIZZINESS [None]
  - SINUS ARRHYTHMIA [None]
  - BRONCHITIS [None]
  - LEFT VENTRICULAR DYSFUNCTION [None]
  - CEREBROVASCULAR DISORDER [None]
  - OVERWEIGHT [None]
  - PRURITUS [None]
  - PERIPHERAL VASCULAR DISORDER [None]
  - CREPITATIONS [None]
  - AORTIC ARTERIOSCLEROSIS [None]
  - SPINAL COLUMN STENOSIS [None]
  - INTERVERTEBRAL DISC PROTRUSION [None]
  - BRADYARRHYTHMIA [None]
  - ABDOMINAL PAIN LOWER [None]
  - DECREASED APPETITE [None]
  - SEROMA [None]
  - VISUAL IMPAIRMENT [None]
  - RALES [None]
  - SPINAL OSTEOARTHRITIS [None]
  - CARDIAC FAILURE CONGESTIVE [None]
  - HYPERTHYROIDISM [None]
  - ECONOMIC PROBLEM [None]
  - GASTRITIS [None]
  - WHEEZING [None]
  - REFUSAL OF TREATMENT BY PATIENT [None]
  - SICK SINUS SYNDROME [None]
  - AORTIC VALVE INCOMPETENCE [None]
  - MENISCUS LESION [None]
  - CARPAL TUNNEL SYNDROME [None]
  - OSTEOPENIA [None]
  - MULTIPLE INJURIES [None]
  - CARDIAC DISORDER [None]
  - ANXIETY [None]
  - IRON DEFICIENCY ANAEMIA [None]
  - DYSPNOEA EXERTIONAL [None]
  - CARDIOMEGALY [None]
  - SKIN DISORDER [None]
  - TOXICITY TO VARIOUS AGENTS [None]
  - ATRIOVENTRICULAR BLOCK FIRST DEGREE [None]
  - BUNDLE BRANCH BLOCK LEFT [None]
  - SUBCLAVIAN ARTERY STENOSIS [None]
